FAERS Safety Report 22085506 (Version 1)
Quarter: 2023Q1

REPORT INFORMATION
  Report Type: Report from Study
  Country: CZ (occurrence: CZ)
  Receive Date: 20230310
  Receipt Date: 20230310
  Transmission Date: 20230418
  Serious: Yes (Other)
  Sender: FDA-Public Use
  Company Number: CZ-TAKEDA-2022TUS093057

PATIENT
  Sex: Male

DRUGS (18)
  1. ANTIHEMOPHILIC FACTOR, PEGYLATED (MW 20000) HUMAN SEQUENCE RECOMBINANT [Suspect]
     Active Substance: ANTIHEMOPHILIC FACTOR, PEGYLATED (MW 20000) HUMAN SEQUENCE RECOMBINANT
     Indication: Factor VIII deficiency
     Dosage: 54 INTERNATIONAL UNIT/KILOGRAM, Q72H
     Route: 065
     Dates: start: 20210204
  2. ANTIHEMOPHILIC FACTOR, PEGYLATED (MW 20000) HUMAN SEQUENCE RECOMBINANT [Suspect]
     Active Substance: ANTIHEMOPHILIC FACTOR, PEGYLATED (MW 20000) HUMAN SEQUENCE RECOMBINANT
     Indication: Factor VIII deficiency
     Dosage: 54 INTERNATIONAL UNIT/KILOGRAM, Q72H
     Route: 065
     Dates: start: 20210204
  3. ANTIHEMOPHILIC FACTOR, PEGYLATED (MW 20000) HUMAN SEQUENCE RECOMBINANT [Suspect]
     Active Substance: ANTIHEMOPHILIC FACTOR, PEGYLATED (MW 20000) HUMAN SEQUENCE RECOMBINANT
     Indication: Factor VIII deficiency
     Dosage: 54 INTERNATIONAL UNIT/KILOGRAM, Q72H
     Route: 065
     Dates: start: 20210204
  4. ACETAMINOPHEN [Concomitant]
     Active Substance: ACETAMINOPHEN
     Dosage: UNK
     Route: 065
     Dates: start: 20210606, end: 20210606
  5. ACETAMINOPHEN [Concomitant]
     Active Substance: ACETAMINOPHEN
     Dosage: UNK
     Route: 065
     Dates: start: 20210911, end: 20210911
  6. ACETAMINOPHEN [Concomitant]
     Active Substance: ACETAMINOPHEN
     Dosage: UNK
     Route: 065
     Dates: start: 20210525, end: 20210525
  7. ACETAMINOPHEN [Concomitant]
     Active Substance: ACETAMINOPHEN
     Dosage: UNK
     Route: 065
     Dates: start: 20220311, end: 20220318
  8. Endiaron [Concomitant]
     Dosage: UNK
     Route: 065
     Dates: start: 20210620, end: 20210620
  9. Endiaron [Concomitant]
     Dosage: UNK
     Route: 065
     Dates: start: 20210607, end: 20210607
  10. TRANEXAMIC ACID [Concomitant]
     Active Substance: TRANEXAMIC ACID
     Dosage: UNK
     Route: 065
     Dates: start: 20210924, end: 20210924
  11. TRANEXAMIC ACID [Concomitant]
     Active Substance: TRANEXAMIC ACID
     Dosage: UNK
     Route: 065
     Dates: start: 20220812, end: 20220816
  12. ERDOSTEINE [Concomitant]
     Active Substance: ERDOSTEINE
     Dosage: UNK
     Route: 065
     Dates: start: 20210924, end: 20210928
  13. ERDOSTEINE [Concomitant]
     Active Substance: ERDOSTEINE
     Dosage: UNK
     Route: 065
     Dates: start: 202203, end: 202203
  14. COMIRNATY [Concomitant]
     Active Substance: TOZINAMERAN
     Dosage: UNK
     Route: 065
     Dates: start: 20210910, end: 20210910
  15. COMIRNATY [Concomitant]
     Active Substance: TOZINAMERAN
     Dosage: UNK
     Route: 065
     Dates: start: 20211126, end: 20211126
  16. COMIRNATY [Concomitant]
     Active Substance: TOZINAMERAN
     Dosage: UNK
     Route: 065
     Dates: start: 20210820, end: 20210820
  17. ACETYLCYSTEINE [Concomitant]
     Active Substance: ACETYLCYSTEINE
     Dosage: UNK
     Dates: start: 20220812, end: 20220822
  18. ACETYLCYSTEINE [Concomitant]
     Active Substance: ACETYLCYSTEINE
     Dosage: UNK
     Route: 065
     Dates: start: 20220915, end: 20220919

REACTIONS (2)
  - Epistaxis [Recovered/Resolved]
  - Nasopharyngitis [Recovered/Resolved]

NARRATIVE: CASE EVENT DATE: 20220812
